FAERS Safety Report 9350853 (Version 2)
Quarter: 2013Q3

REPORT INFORMATION
  Report Type: Report from Study
  Country: BE (occurrence: BE)
  Receive Date: 20130617
  Receipt Date: 20130705
  Transmission Date: 20140515
  Serious: Yes (Other)
  Sender: FDA-Public Use
  Company Number: BE-SANOFI-AVENTIS-2013SA058599

PATIENT
  Age: 70 Year
  Sex: Male

DRUGS (6)
  1. JEVTANA [Suspect]
     Indication: PROSTATE CANCER
     Route: 065
     Dates: start: 20121214
  2. JEVTANA [Suspect]
     Indication: PROSTATE CANCER
     Route: 065
     Dates: start: 20130517
  3. PREDNISONE [Concomitant]
  4. CALCIUM CARBONATE [Concomitant]
  5. VITAMIN D [Concomitant]
  6. SIPRALEXA [Concomitant]

REACTIONS (3)
  - Cystitis haemorrhagic [Not Recovered/Not Resolved]
  - Haematuria [Not Recovered/Not Resolved]
  - Abdominal pain [Not Recovered/Not Resolved]
